FAERS Safety Report 14717868 (Version 2)
Quarter: 2021Q1

REPORT INFORMATION
  Report Type: Report from Study
  Country: US (occurrence: US)
  Receive Date: 20180404
  Receipt Date: 20210106
  Transmission Date: 20210419
  Serious: No
  Sender: FDA-Public Use
  Company Number: US-SA-2018SA034314

PATIENT
  Age: 49 Year
  Sex: Female

DRUGS (3)
  1. TRIAMCINOLONE ACETONIDE. [Concomitant]
     Active Substance: TRIAMCINOLONE ACETONIDE
     Indication: PRURITUS
     Dosage: UNK
     Route: 065
  2. DUPILUMAB [Suspect]
     Active Substance: DUPILUMAB
     Indication: DERMATITIS ATOPIC
     Dosage: 600 MG, 1X
     Route: 058
     Dates: start: 20180126, end: 20180126
  3. DUPILUMAB [Suspect]
     Active Substance: DUPILUMAB
     Dosage: 300 MG, QOW
     Route: 058
     Dates: start: 2018, end: 201901

REACTIONS (11)
  - Anxiety [Unknown]
  - Pruritus [Recovered/Resolved]
  - Eye pruritus [Unknown]
  - Pruritus [Not Recovered/Not Resolved]
  - Oedema peripheral [Recovered/Resolved]
  - Rebound eczema [Not Recovered/Not Resolved]
  - Erythema [Not Recovered/Not Resolved]
  - Scratch [Recovered/Resolved]
  - Erythema [Recovered/Resolved]
  - Dry eye [Unknown]
  - Skin hyperpigmentation [Not Recovered/Not Resolved]

NARRATIVE: CASE EVENT DATE: 20180129
